FAERS Safety Report 25147442 (Version 1)
Quarter: 2025Q2

REPORT INFORMATION
  Report Type: Report from Study
  Country: CA (occurrence: CA)
  Receive Date: 20250401
  Receipt Date: 20250401
  Transmission Date: 20250716
  Serious: Yes (Other)
  Sender: ABBVIE
  Company Number: CA-ABBVIE-6198134

PATIENT
  Sex: Female

DRUGS (1)
  1. RINVOQ [Suspect]
     Active Substance: UPADACITINIB
     Indication: Colitis ulcerative
     Dosage: FORM STRENGTH 15 MILLIGRAM
     Route: 048

REACTIONS (10)
  - Basal cell carcinoma [Not Recovered/Not Resolved]
  - Impaired healing [Unknown]
  - Headache [Unknown]
  - Weight increased [Unknown]
  - Abdominal pain upper [Unknown]
  - Alopecia [Unknown]
  - Acne [Unknown]
  - Rosacea [Unknown]
  - Swelling face [Unknown]
  - Scar [Unknown]
